FAERS Safety Report 5897359-5 (Version None)
Quarter: 2008Q3

REPORT INFORMATION
  Report Type: 
  Country: None (occurrence: None)
  Receive Date: 20080912
  Receipt Date: 20080108
  Transmission Date: 20090109
  Serious: Yes (Hospitalization, Other)
  Sender: FDA-Public Use
  Company Number: 44084

PATIENT
  Age: 57 Year
  Sex: Female
  Weight: 108 kg

DRUGS (1)
  1. CYTARABINE [Suspect]
     Indication: CHRONIC LEUKAEMIA
     Dosage: 500MG/M2 IV DAYS 2-4
     Route: 042
     Dates: start: 20071203, end: 20071206

REACTIONS (3)
  - ABDOMINAL PAIN [None]
  - NAUSEA [None]
  - VOMITING [None]
